FAERS Safety Report 24162858 (Version 1)
Quarter: 2024Q3

REPORT INFORMATION
  Report Type: Spontaneous
  Country: US (occurrence: None)
  Receive Date: 20240731
  Receipt Date: 20240731
  Transmission Date: 20241016
  Serious: Yes (Hospitalization)
  Sender: Public
  Company Number: None

PATIENT
  Sex: Male

DRUGS (5)
  1. REMICADE [Suspect]
     Active Substance: INFLIXIMAB
     Indication: Pouchitis
     Route: 042
     Dates: start: 202407
  2. SODIUM CHLOR (250MG/BAG) [Concomitant]
  3. SODIUM CHLOR (250MG/BAG) [Concomitant]
  4. STERILE WATER INJ (10ML/VL) [Concomitant]
  5. NORMAL SALINE FLUSH (5ML) [Concomitant]

REACTIONS (6)
  - Infusion related reaction [None]
  - Meningism [None]
  - Dyspnoea [None]
  - Swollen tongue [None]
  - Erythema [None]
  - Back pain [None]
